FAERS Safety Report 7775667-0 (Version None)
Quarter: 2011Q3

REPORT INFORMATION
  Report Type: 
  Country: None (occurrence: None)
  Receive Date: 20110923
  Receipt Date: 20110916
  Transmission Date: 20111222
  Serious: Yes (Hospitalization)
  Sender: FDA-Public Use
  Company Number: US-GLAXOSMITHKLINE-A0930082A

PATIENT
  Age: 84 Year
  Sex: Female

DRUGS (9)
  1. ASCORBIC ACID [Concomitant]
     Dosage: 1000MG PER DAY
     Route: 048
  2. GLUCOSAMINE SULFATE [Concomitant]
     Dosage: 500MG TWICE PER DAY
     Route: 048
  3. ALBUTEROL [Concomitant]
     Dosage: 1VIAL AS REQUIRED
     Route: 055
  4. ATENOLOL [Concomitant]
     Dosage: 50MG TWICE PER DAY
     Route: 048
  5. VITAMIN D [Concomitant]
     Dosage: 1000UNIT TWICE PER DAY
     Route: 048
  6. ASPIRIN [Concomitant]
     Dosage: 81MG PER DAY
     Route: 048
  7. LEVOXYL [Concomitant]
     Dosage: 75MCG PER DAY
     Route: 048
  8. ADVAIR DISKUS 100/50 [Suspect]
     Indication: ASTHMA
     Dosage: 1PUFF TWICE PER DAY
     Route: 055
     Dates: start: 20091110, end: 20101223
  9. ZOCOR [Concomitant]
     Dosage: 40MG PER DAY
     Route: 048

REACTIONS (8)
  - COUGH [None]
  - BRONCHITIS [None]
  - DYSPNOEA [None]
  - ASTHMA [None]
  - RENAL DISORDER [None]
  - CARDIAC DISORDER [None]
  - FATIGUE [None]
  - DRUG ADMINISTRATION ERROR [None]
